FAERS Safety Report 10277366 (Version 3)
Quarter: 2014Q3

REPORT INFORMATION
  Report Type: Report from Study
  Country: GR (occurrence: GR)
  Receive Date: 20140703
  Receipt Date: 20140918
  Transmission Date: 20150326
  Serious: Yes (Hospitalization)
  Sender: FDA-Public Use
  Company Number: GR-ABBVIE-14K-066-1225880-00

PATIENT
  Age: 12 Year
  Sex: Male

DRUGS (6)
  1. HUMIRA [Suspect]
     Active Substance: ADALIMUMAB
     Indication: CROHN^S DISEASE
     Dosage: LOADING DOSE WEEK 1
     Route: 058
     Dates: start: 20130718, end: 20130718
  2. HUMIRA [Suspect]
     Active Substance: ADALIMUMAB
     Dates: start: 201308
  3. HUMIRA [Suspect]
     Active Substance: ADALIMUMAB
  4. HUMIRA [Suspect]
     Active Substance: ADALIMUMAB
     Route: 058
     Dates: start: 201403
  5. HUMIRA [Suspect]
     Active Substance: ADALIMUMAB
     Dosage: LOADING DOSE 2 (AFTER 2 WEEKS)
     Route: 058
     Dates: start: 201308, end: 201308
  6. HUMIRA [Suspect]
     Active Substance: ADALIMUMAB
     Route: 058
     Dates: start: 201405

REACTIONS (3)
  - Crohn^s disease [Recovered/Resolved]
  - Crohn^s disease [Recovered/Resolved]
  - Inflammation [Recovered/Resolved]

NARRATIVE: CASE EVENT DATE: 201405
